FAERS Safety Report 17421467 (Version 1)
Quarter: 2020Q1

REPORT INFORMATION
  Report Type: Spontaneous
  Country: ES (occurrence: ES)
  Receive Date: 20200214
  Receipt Date: 20200214
  Transmission Date: 20200409
  Serious: Yes (Other)
  Sender: FDA-Public Use
  Company Number: ES-JNJFOC-20200213217

PATIENT
  Age: 81 Year
  Sex: Female

DRUGS (1)
  1. DUROGESIC MATRIX [Suspect]
     Active Substance: FENTANYL
     Indication: BACK PAIN
     Route: 062
     Dates: start: 2019, end: 20191110

REACTIONS (5)
  - Product monitoring error [Unknown]
  - Withdrawal syndrome [Unknown]
  - Anxiety [Unknown]
  - Nervousness [Unknown]
  - Depression [Unknown]

NARRATIVE: CASE EVENT DATE: 20191110
